FAERS Safety Report 5959592-3 (Version None)
Quarter: 2008Q4

REPORT INFORMATION
  Report Type: 
  Country: None (occurrence: None)
  Receive Date: 20081118
  Receipt Date: 20081104
  Transmission Date: 20090506
  Serious: Yes (Death, Life-Threatening)
  Sender: FDA-Public Use
  Company Number: 2008-03010

PATIENT
  Age: 67 Year
  Sex: Male

DRUGS (6)
  1. VELCADE [Suspect]
     Indication: MULTIPLE MYELOMA
     Dosage: 2 MG, INTRAVENOUS
     Route: 042
     Dates: start: 20080725, end: 20080801
  2. ITRACONAZOLE [Concomitant]
  3. SULFAMETHOXAZOLE AND TRIMETHOPRIM [Concomitant]
  4. DIURETICS [Concomitant]
  5. DEXAMETHASONE 0.5MG TAB [Concomitant]
  6. ZOMETA [Concomitant]

REACTIONS (8)
  - BLOOD LACTATE DEHYDROGENASE INCREASED [None]
  - BONE MARROW FAILURE [None]
  - BONE PAIN [None]
  - DEHYDRATION [None]
  - PULMONARY OEDEMA [None]
  - SEPSIS [None]
  - TUMOUR LYSIS SYNDROME [None]
  - WHITE BLOOD CELL COUNT DECREASED [None]
